FAERS Safety Report 5083443-5 (Version None)
Quarter: 2006Q3

REPORT INFORMATION
  Report Type: 
  Country: None (occurrence: None)
  Receive Date: 20060816
  Receipt Date: 20060802
  Transmission Date: 20061208
  Serious: Yes (Hospitalization)
  Sender: FDA-Public Use
  Company Number: US-2006-021608

PATIENT
  Age: 39 Year
  Sex: Male

DRUGS (2)
  1. BETASERON [Suspect]
     Indication: RELAPSING-REMITTING MULTIPLE SCLEROSIS
     Dosage: 8 MIU, EVERY 2D, SUBCUTANEOUS
     Route: 058
     Dates: start: 20020428
  2. NOVANTRONE [Suspect]
     Dates: start: 20060701, end: 20060701

REACTIONS (7)
  - ANOREXIA [None]
  - BLOOD URINE PRESENT [None]
  - CHILLS [None]
  - DISEASE PROGRESSION [None]
  - DRUG HYPERSENSITIVITY [None]
  - DYSPNOEA [None]
  - MULTIPLE SCLEROSIS [None]
